FAERS Safety Report 6565374-4 (Version None)
Quarter: 2010Q1

REPORT INFORMATION
  Report Type: 
  Country: None (occurrence: None)
  Receive Date: 20100201
  Receipt Date: 20100125
  Transmission Date: 20100710
  Serious: Yes (Hospitalization, Other)
  Sender: FDA-Public Use
  Company Number: JP-EISAI INC.-E2020-05925-SPO-JP

PATIENT
  Age: 84 Year
  Sex: Female

DRUGS (4)
  1. ARICEPT [Suspect]
     Indication: DEMENTIA ALZHEIMER'S TYPE
     Route: 048
     Dates: start: 20040101, end: 20091125
  2. ARICEPT [Suspect]
     Route: 048
     Dates: start: 20091126, end: 20091223
  3. ASPIRIN [Concomitant]
     Route: 048
  4. SOLETON [Concomitant]
     Indication: HEADACHE
     Route: 048

REACTIONS (1)
  - DUODENAL PERFORATION [None]
